FAERS Safety Report 16656881 (Version 3)
Quarter: 2019Q3

REPORT INFORMATION
  Report Type: Spontaneous
  Country: RU (occurrence: RU)
  Receive Date: 20190801
  Receipt Date: 20190819
  Transmission Date: 20191004
  Serious: Yes (Death)
  Sender: FDA-Public Use
  Company Number: RU-ABBVIE-19K-251-2873937-00

PATIENT
  Age: 4 Year
  Sex: Male
  Weight: 18 kg

DRUGS (5)
  1. PROPOFOL. [Concomitant]
     Active Substance: PROPOFOL
     Route: 042
     Dates: start: 20190723, end: 20190723
  2. PROPOFOL. [Concomitant]
     Active Substance: PROPOFOL
     Indication: GENERAL ANAESTHESIA
     Route: 042
     Dates: start: 20190723, end: 20190723
  3. FENTANYL. [Concomitant]
     Active Substance: FENTANYL
     Indication: GENERAL ANAESTHESIA
     Route: 042
     Dates: start: 20190723, end: 20190723
  4. SEVORANE [Suspect]
     Active Substance: SEVOFLURANE
     Dosage: 2/2
     Route: 055
     Dates: start: 20190723, end: 20190723
  5. SEVORANE [Suspect]
     Active Substance: SEVOFLURANE
     Indication: GENERAL ANAESTHESIA
     Dosage: 8/8
     Route: 055
     Dates: start: 20190723, end: 20190723

REACTIONS (1)
  - Hyperthermia malignant [Fatal]

NARRATIVE: CASE EVENT DATE: 20190724
